FAERS Safety Report 15028630 (Version 1)
Quarter: 2018Q2

REPORT INFORMATION
  Report Type: Spontaneous
  Country: HR (occurrence: HR)
  Receive Date: 20180619
  Receipt Date: 20180619
  Transmission Date: 20180711
  Serious: Yes (Other)
  Sender: FDA-Public Use
  Company Number: HR-TEVA-2018-HR-909874

PATIENT
  Age: 28 Year
  Sex: Female

DRUGS (1)
  1. SUMAMED [Suspect]
     Active Substance: AZITHROMYCIN ANHYDROUS
     Indication: PNEUMONIA
     Route: 048

REACTIONS (3)
  - Ocular hyperaemia [Recovered/Resolved]
  - Oral mucosal erythema [Recovered/Resolved]
  - Dermatitis bullous [Recovered/Resolved]

NARRATIVE: CASE EVENT DATE: 20180115
